FAERS Safety Report 6159850-6 (Version None)
Quarter: 2009Q2

REPORT INFORMATION
  Report Type: 
  Country: None (occurrence: None)
  Receive Date: 20090420
  Receipt Date: 20090408
  Transmission Date: 20091009
  Serious: Yes (Hospitalization, Other)
  Sender: FDA-Public Use
  Company Number: FR-AVENTIS-200911441FR

PATIENT
  Age: 54 Year
  Sex: Female

DRUGS (16)
  1. TRIATEC                            /00885601/ [Suspect]
     Indication: DRUG USE FOR UNKNOWN INDICATION
     Route: 048
     Dates: start: 20081001
  2. LASILIX                            /00032601/ [Suspect]
     Indication: DRUG USE FOR UNKNOWN INDICATION
     Dates: start: 20081001
  3. MEDIATOR [Suspect]
     Indication: WEIGHT CONTROL
     Dosage: DOSE: 300 TO 450
     Route: 048
     Dates: start: 20070901, end: 20081201
  4. CARDENSIEL [Suspect]
     Indication: DRUG USE FOR UNKNOWN INDICATION
     Route: 048
     Dates: start: 20081001
  5. EFFEXOR [Suspect]
     Indication: DEPRESSIVE SYMPTOM
     Dates: start: 20010101
  6. EFFEXOR [Suspect]
     Dates: start: 20080101
  7. HEMIGOXINE NATIVELLE [Suspect]
     Indication: DRUG USE FOR UNKNOWN INDICATION
     Dates: start: 20081001
  8. ATARAX [Suspect]
     Indication: DRUG USE FOR UNKNOWN INDICATION
     Dates: start: 20081001
  9. SINGULAIR [Concomitant]
     Indication: DRUG USE FOR UNKNOWN INDICATION
  10. TRANXENE [Concomitant]
     Indication: DRUG USE FOR UNKNOWN INDICATION
  11. LAROXYL [Concomitant]
     Indication: DEPRESSIVE SYMPTOM
     Dates: start: 20060101
  12. LANSOPRAZOLE [Concomitant]
     Indication: DRUG USE FOR UNKNOWN INDICATION
  13. DETENSIEL                          /00802601/ [Concomitant]
     Indication: DRUG USE FOR UNKNOWN INDICATION
  14. CANDESARTAN CILEXETIL [Concomitant]
     Indication: DRUG USE FOR UNKNOWN INDICATION
  15. KARDEGIC                           /00002703/ [Concomitant]
     Indication: DRUG USE FOR UNKNOWN INDICATION
     Route: 048
  16. ELISOR [Concomitant]
     Indication: DRUG USE FOR UNKNOWN INDICATION

REACTIONS (2)
  - AORTIC VALVE INCOMPETENCE [None]
  - MITRAL VALVE INCOMPETENCE [None]
